FAERS Safety Report 8879096 (Version 1)
Quarter: 2012Q4

REPORT INFORMATION
  Report Type: Spontaneous
  Country: US (occurrence: None)
  Receive Date: 20121031
  Receipt Date: 20121031
  Transmission Date: 20130627
  Serious: No
  Sender: FDA-Public Use
  Company Number: None

PATIENT
  Age: 75 Year
  Sex: Male
  Weight: 78 kg

DRUGS (1)
  1. HEPARIN [Suspect]
     Indication: HEART VALVE DISORDERS
     Route: 042
     Dates: start: 20120929, end: 20121002

REACTIONS (3)
  - Abdominal wall haematoma [None]
  - Shock haemorrhagic [None]
  - Multi-organ failure [None]
